FAERS Safety Report 24736213 (Version 1)
Quarter: 2024Q4

REPORT INFORMATION
  Report Type: Spontaneous
  Country: IE (occurrence: IE)
  Receive Date: 20241216
  Receipt Date: 20241216
  Transmission Date: 20250115
  Serious: Yes (Other)
  Sender: CHEPLAPHARM
  Company Number: None

PATIENT
  Age: 33 Year
  Sex: Male
  Weight: 75 kg

DRUGS (4)
  1. OLANZAPINE [Suspect]
     Active Substance: OLANZAPINE
     Indication: Partial seizures
     Dates: end: 202410
  2. ZONEGRAN [Suspect]
     Active Substance: ZONISAMIDE
     Indication: Partial seizures
     Route: 048
     Dates: start: 20141121, end: 20201108
  3. TEGRETOL [Suspect]
     Active Substance: CARBAMAZEPINE
     Indication: Partial seizures
     Route: 048
     Dates: start: 20111121, end: 20201121
  4. CLOBAZAM [Suspect]
     Active Substance: CLOBAZAM
     Indication: Partial seizures
     Route: 048
     Dates: start: 20111121, end: 20201121

REACTIONS (7)
  - Blindness [Unknown]
  - Hallucinations, mixed [Unknown]
  - Muscle spasms [Unknown]
  - Drug interaction [Unknown]
  - General physical health deterioration [Unknown]
  - Overdose [Unknown]
  - Off label use [Unknown]

NARRATIVE: CASE EVENT DATE: 20181121
